FAERS Safety Report 5281962-X (Version None)
Quarter: 2007Q1

REPORT INFORMATION
  Report Type: 
  Country: None (occurrence: None)
  Receive Date: 20070326
  Receipt Date: 20070314
  Transmission Date: 20070707
  Serious: Yes (Hospitalization)
  Sender: FDA-Public Use
  Company Number: GXKR2007AU02607

PATIENT
  Age: 5 Year
  Sex: Male
  Weight: 20 kg

DRUGS (2)
  1. PARACETAMOL (NGX)(PARACETAMOL) TABLET [Suspect]
     Indication: VIRAL INFECTION
     Dosage: 20 ML (152 MG/KG)
  2. PARACETAMOL+CODEINE (NGX)(ACETAMINOPHEN (PARACETAMOL, CODEINE PHOSPHAT [Suspect]
     Indication: VIRAL INFECTION
     Dosage: 20 ML (152 MG/KG)

REACTIONS (6)
  - ABDOMINAL PAIN [None]
  - INCORRECT DOSE ADMINISTERED [None]
  - LETHARGY [None]
  - OVERDOSE [None]
  - PYREXIA [None]
  - VOMITING [None]
